FAERS Safety Report 7414057-7 (Version None)
Quarter: 2011Q2

REPORT INFORMATION
  Report Type: 
  Country: None (occurrence: None)
  Receive Date: 20110414
  Receipt Date: 20110411
  Transmission Date: 20111010
  Serious: No
  Sender: FDA-Public Use
  Company Number: US-PFIZER INC-2011080018

PATIENT
  Sex: Male

DRUGS (2)
  1. TEGRETOL [Suspect]
     Dosage: 100 MG AM AND 100 MG AT BEDTIME
  2. GEODON [Suspect]
     Dosage: 80 MG, UNK

REACTIONS (2)
  - NAUSEA [None]
  - VOMITING [None]
